FAERS Safety Report 17525863 (Version 1)
Quarter: 2020Q1

REPORT INFORMATION
  Report Type: Spontaneous
  Country: US (occurrence: US)
  Receive Date: 20200311
  Receipt Date: 20200311
  Transmission Date: 20200409
  Serious: Yes (Death, Life-Threatening, Hospitalization)
  Sender: FDA-Public Use
  Company Number: US-MYLANLABS-2020M1026101

PATIENT
  Age: 59 Year
  Sex: Female

DRUGS (3)
  1. ARIPIPRAZOLE. [Suspect]
     Active Substance: ARIPIPRAZOLE
     Indication: PRODUCT USED FOR UNKNOWN INDICATION
     Dosage: UNK
     Route: 065
  2. LORAZEPAM. [Suspect]
     Active Substance: LORAZEPAM
     Indication: NEUROLEPTIC MALIGNANT SYNDROME
     Route: 065
  3. DANTROLENE. [Suspect]
     Active Substance: DANTROLENE SODIUM
     Indication: NEUROLEPTIC MALIGNANT SYNDROME
     Route: 065

REACTIONS (7)
  - Upper gastrointestinal haemorrhage [Unknown]
  - Neuroleptic malignant syndrome [Fatal]
  - Metabolic acidosis [Unknown]
  - Labile blood pressure [Unknown]
  - Drug ineffective [Unknown]
  - Cardiac arrest [Fatal]
  - Renal failure [Unknown]
